FAERS Safety Report 12195471 (Version 3)
Quarter: 2017Q1

REPORT INFORMATION
  Report Type: Spontaneous
  Country: US (occurrence: US)
  Receive Date: 20160321
  Receipt Date: 20170316
  Transmission Date: 20170428
  Serious: No
  Sender: FDA-Public Use
  Company Number: US-REGENERON PHARMACEUTICALS, INC.-2016-11697

PATIENT

DRUGS (9)
  1. LISINOPRIL/HCTZ [Concomitant]
     Active Substance: HYDROCHLOROTHIAZIDE\LISINOPRIL
     Dosage: 20-12.5 MG
  2. PRESERVISION AREDS [Concomitant]
     Active Substance: MINERALS\VITAMINS
     Dosage: UNK
  3. ZETIA [Concomitant]
     Active Substance: EZETIMIBE
     Dosage: 10 MG MILLIGRAM(S), QD
  4. METOPROLOL. [Concomitant]
     Active Substance: METOPROLOL
     Dosage: 50 MG MILLIGRAM(S), QD
  5. DILTIAZEM. [Concomitant]
     Active Substance: DILTIAZEM
     Dosage: 240 MG MILLIGRAM(S), QD
  6. ARCALYST [Suspect]
     Active Substance: RILONACEPT
     Dosage: 160 MG MILLIGRAM(S), WEEKLY
     Route: 058
  7. VITAMIN D                          /00107901/ [Concomitant]
     Active Substance: ERGOCALCIFEROL
     Dosage: UNK
  8. ARCALYST [Suspect]
     Active Substance: RILONACEPT
     Indication: FAMILIAL COLD AUTOINFLAMMATORY SYNDROME
     Dosage: 160 MG MILLIGRAM(S), WEEKLY
     Route: 058
     Dates: start: 2007
  9. PANTOPRAZOLE [Concomitant]
     Active Substance: PANTOPRAZOLE SODIUM
     Dosage: 40 MG MILLIGRAM(S), QD

REACTIONS (6)
  - Chest discomfort [Recovered/Resolved]
  - Muscle spasms [Not Recovered/Not Resolved]
  - Lung disorder [Unknown]
  - Dyspnoea [Not Recovered/Not Resolved]
  - Fatigue [Not Recovered/Not Resolved]
  - Peripheral swelling [Not Recovered/Not Resolved]

NARRATIVE: CASE EVENT DATE: 201512
